FAERS Safety Report 5567894-8 (Version None)
Quarter: 2007Q4

REPORT INFORMATION
  Report Type: 
  Country: None (occurrence: None)
  Receive Date: 20071218
  Receipt Date: 20071218
  Transmission Date: 20080405
  Serious: No
  Sender: FDA-Public Use
  Company Number: None

PATIENT
  Age: 49 Year
  Sex: Female
  Weight: 85.7298 kg

DRUGS (6)
  1. CLOZAPINE [Suspect]
     Dosage: 75MG TID PO
     Route: 048
  2. CITALOPRAM HYDROBROMIDE [Concomitant]
  3. LORAZEPAM [Concomitant]
  4. BENZTROPINE [Concomitant]
  5. PROPRANOLOL [Concomitant]
  6. TOLTERODINE TARTRATE [Concomitant]

REACTIONS (4)
  - CONFUSIONAL STATE [None]
  - GAIT DISTURBANCE [None]
  - PUPILLARY LIGHT REFLEX TESTS ABNORMAL [None]
  - TIC [None]
